FAERS Safety Report 13050970 (Version 1)
Quarter: 2016Q4

REPORT INFORMATION
  Report Type: Spontaneous
  Country: GB (occurrence: GB)
  Receive Date: 20161221
  Receipt Date: 20161221
  Transmission Date: 20170207
  Serious: Yes (Other)
  Sender: FDA-Public Use
  Company Number: GB-JNJFOC-20161213139

PATIENT
  Age: 25 Year
  Sex: Female

DRUGS (2)
  1. RISPERDAL CONSTA [Suspect]
     Active Substance: RISPERIDONE
     Indication: SCHIZOPHRENIA
     Route: 030
     Dates: start: 201603, end: 20161124
  2. PROCYCLIDINE [Concomitant]
     Active Substance: PROCYCLIDINE
     Route: 065

REACTIONS (4)
  - Amenorrhoea [Unknown]
  - Weight increased [Unknown]
  - Pituitary tumour benign [Unknown]
  - Blood prolactin increased [Unknown]

NARRATIVE: CASE EVENT DATE: 20160410
